FAERS Safety Report 23825867 (Version 1)
Quarter: 2024Q2

REPORT INFORMATION
  Report Type: Spontaneous
  Country: US (occurrence: US)
  Receive Date: 20240507
  Receipt Date: 20240507
  Transmission Date: 20240716
  Serious: No
  Sender: FDA-Public Use
  Company Number: US-PFIZER INC-202400099919

PATIENT
  Age: 53 Year
  Sex: Male
  Weight: 87.54 kg

DRUGS (4)
  1. NURTEC ODT [Suspect]
     Active Substance: RIMEGEPANT SULFATE
     Indication: Migraine
     Dosage: 75MG; TAKES IT EVERY OTHER DAY AS PROPHYLACTIC
     Route: 060
     Dates: start: 20240313
  2. BACLOFEN [Concomitant]
     Active Substance: BACLOFEN
     Indication: Spinal disorder
     Dosage: TAKES 10MG BEFORE BED
     Dates: start: 20240416
  3. AUVELITY [Concomitant]
     Active Substance: BUPROPION HYDROCHLORIDE\DEXTROMETHORPHAN HYDROBROMIDE
     Indication: Depression
     Dosage: 45MG OF DEXTROMETHORPHAN AND 105MG OF BUPROPION AND HE TAKES TWO PER DAY
  4. DIAZEPAM [Concomitant]
     Active Substance: DIAZEPAM
     Indication: Panic attack
     Dosage: HAS BEEN ON THAT FOR OVER 10 YEARS PRESCRIBED DAILY OR AS NEEDED

REACTIONS (1)
  - Therapeutic response unexpected [Unknown]
